FAERS Safety Report 6069634-5 (Version None)
Quarter: 2009Q1

REPORT INFORMATION
  Report Type: 
  Country: None (occurrence: None)
  Receive Date: 20090209
  Receipt Date: 20090202
  Transmission Date: 20090719
  Serious: Yes (Death, Other)
  Sender: FDA-Public Use
  Company Number: JP-BRISTOL-MYERS SQUIBB COMPANY-14488845

PATIENT
  Age: 68 Year
  Sex: Male
  Weight: 60 kg

DRUGS (6)
  1. ABILIFY [Suspect]
     Indication: SCHIZOPHRENIA
     Dosage: 6MG QD FRM 23MAY-20OCT08(151D),12MG QD FRM 21-27OCT08(7D),18MG QD 28OCT-22DEC08(56D)
     Route: 048
     Dates: start: 20080523, end: 20081222
  2. RISPERDAL [Suspect]
     Indication: HALLUCINATION
     Dosage: POWDER FOR OS 23MAY-27OCT,TABS17NOV08-23DEC08;LIQUID FORM18-21DEC08 2MGBID,1MGBID-15-23DEC.
     Route: 048
     Dates: start: 20081117, end: 20081223
  3. RISPERDAL [Suspect]
     Indication: DELUSION
     Dosage: POWDER FOR OS 23MAY-27OCT,TABS17NOV08-23DEC08;LIQUID FORM18-21DEC08 2MGBID,1MGBID-15-23DEC.
     Route: 048
     Dates: start: 20081117, end: 20081223
  4. SERENACE [Suspect]
     Indication: HALLUCINATION
     Dosage: FORMULATION-INJECTION
     Dates: start: 20081222
  5. SERENACE [Suspect]
     Indication: DELUSION
     Dosage: FORMULATION-INJECTION
     Dates: start: 20081222
  6. RIVOTRIL [Suspect]
     Route: 048
     Dates: start: 20081027, end: 20081223

REACTIONS (2)
  - COMPLETED SUICIDE [None]
  - PERSECUTORY DELUSION [None]
